FAERS Safety Report 8995797 (Version 1)
Quarter: 2013Q1

REPORT INFORMATION
  Report Type: Spontaneous
  Country: JP (occurrence: JP)
  Receive Date: 20130102
  Receipt Date: 20130102
  Transmission Date: 20140127
  Serious: Yes (Hospitalization)
  Sender: FDA-Public Use
  Company Number: JP-ASTRAZENECA-2012SE96397

PATIENT
  Age: 49 Year
  Sex: Male

DRUGS (6)
  1. BLOPRESS [Suspect]
     Indication: HYPERTENSION
     Route: 048
     Dates: start: 20060508
  2. LASIX [Concomitant]
     Route: 065
  3. ARTIST [Concomitant]
     Route: 048
  4. ADALAT [Concomitant]
     Route: 048
  5. CALCIUM CARBONATE [Concomitant]
     Route: 048
  6. EPADEL [Concomitant]
     Route: 048

REACTIONS (1)
  - Cardiac arrest [Unknown]
